FAERS Safety Report 9675896 (Version 1)
Quarter: 2013Q4

REPORT INFORMATION
  Report Type: Spontaneous
  Country: US (occurrence: US)
  Receive Date: 20131107
  Receipt Date: 20131107
  Transmission Date: 20140711
  Serious: Yes (Hospitalization)
  Sender: FDA-Public Use
  Company Number: US-AMGEN-USASP2013078268

PATIENT
  Age: 66 Year
  Sex: Male

DRUGS (1)
  1. ENBREL [Suspect]
     Indication: RHEUMATOID ARTHRITIS
     Dosage: 50 MG, QWK
     Route: 065
     Dates: start: 20130516, end: 20130825

REACTIONS (4)
  - Back pain [Not Recovered/Not Resolved]
  - Hallucination [Recovered/Resolved]
  - Staphylococcal infection [Not Recovered/Not Resolved]
  - Surgery [Not Recovered/Not Resolved]
